FAERS Safety Report 16935939 (Version 2)
Quarter: 2019Q4

REPORT INFORMATION
  Report Type: Spontaneous
  Country: NL (occurrence: GB)
  Receive Date: 20191018
  Receipt Date: 20191212
  Transmission Date: 20200122
  Serious: Yes (Other)
  Sender: FDA-Public Use
  Company Number: GB-FRESENIUS KABI-FK201911175

PATIENT
  Age: 69 Year
  Sex: Female

DRUGS (1)
  1. CARBOPLATIN (MANUFACTURER UNKNOWN) [Suspect]
     Active Substance: CARBOPLATIN
     Indication: PRODUCT USED FOR UNKNOWN INDICATION
     Route: 065

REACTIONS (4)
  - Blood pressure increased [Unknown]
  - Flushing [Unknown]
  - Heart rate increased [Unknown]
  - Dyspnoea [Unknown]
